FAERS Safety Report 12869599 (Version 1)
Quarter: 2016Q4

REPORT INFORMATION
  Report Type: Spontaneous
  Country: US (occurrence: US)
  Receive Date: 20161020
  Receipt Date: 20161020
  Transmission Date: 20170207
  Serious: Yes (Other)
  Sender: FDA-Public Use
  Company Number: None

PATIENT
  Age: 83 Year
  Sex: Female
  Weight: 56.25 kg

DRUGS (5)
  1. VITAMIN D [Concomitant]
     Active Substance: CHOLECALCIFEROL
  2. SIMVISTATION [Concomitant]
  3. LOW-DOSE ASPIRIN [Concomitant]
     Active Substance: ASPIRIN
  4. CHLORHEXIDINE GLUCONATE 0.12% [Suspect]
     Active Substance: CHLORHEXIDINE GLUCONATE
     Indication: GINGIVITIS
     Dosage: ?          QUANTITY:15 MILLILITERS;OTHER ROUTE:SWISH IN MOUTH?
     Dates: start: 20161005, end: 20161006
  5. COQ10 [Concomitant]
     Active Substance: UBIDECARENONE

REACTIONS (4)
  - Swelling face [None]
  - Erythema [None]
  - Eye swelling [None]
  - Pruritus [None]

NARRATIVE: CASE EVENT DATE: 20161006
